FAERS Safety Report 6202725-4 (Version None)
Quarter: 2009Q2

REPORT INFORMATION
  Report Type: 
  Country: None (occurrence: None)
  Receive Date: 20090526
  Receipt Date: 20090515
  Transmission Date: 20091009
  Serious: Yes (Hospitalization)
  Sender: FDA-Public Use
  Company Number: PHHY2009CH18639

PATIENT
  Age: 35 Year
  Sex: Female

DRUGS (13)
  1. CERTICAN [Suspect]
     Indication: LUNG TRANSPLANT
     Dosage: 1.5 MG/DAY
     Dates: end: 20090421
  2. CERTICAN [Interacting]
     Dosage: 0.25 MG/DAY
     Dates: start: 20090425
  3. VFEND [Interacting]
     Dosage: 200 MG/DAY
  4. CELLCEPT [Concomitant]
     Dosage: 2 G/DAY
     Dates: end: 20090421
  5. CELLCEPT [Concomitant]
     Dosage: 2 G/DAY
     Dates: start: 20090424
  6. PREDNISONE [Concomitant]
     Dosage: 30 MG/DAY
  7. PRAVASTATIN [Concomitant]
     Dosage: 20 MG/DAY
  8. BACTRIM [Concomitant]
     Dosage: 2400 MG/DAY
  9. DAFALGAN [Concomitant]
     Dosage: 4 G/D
  10. NEXIUM [Concomitant]
     Dosage: 40 MG/DAY
  11. VALCYTE [Concomitant]
     Dosage: 900 MG/DAY
  12. COSOPT [Concomitant]
     Dosage: 2 GTTS/DAY
  13. CALCIMAGON-D3 [Concomitant]
     Dosage: 1000 MG/DAY

REACTIONS (9)
  - ABDOMINAL PAIN [None]
  - DIARRHOEA [None]
  - DRUG INTERACTION [None]
  - DRUG LEVEL BELOW THERAPEUTIC [None]
  - DRUG TOXICITY [None]
  - GASTROENTERITIS [None]
  - IMMUNOSUPPRESSANT DRUG LEVEL INCREASED [None]
  - PYREXIA [None]
  - VOMITING [None]
